FAERS Safety Report 23038089 (Version 1)
Quarter: 2023Q4

REPORT INFORMATION
  Report Type: Spontaneous
  Country: US (occurrence: None)
  Receive Date: 20231005
  Receipt Date: 20231005
  Transmission Date: 20240110
  Serious: Yes (unspecified)
  Sender: FDA-Public Use
  Company Number: None

PATIENT
  Age: 53 Year
  Sex: Male
  Weight: 72 kg

DRUGS (6)
  1. OZEMPIC [Suspect]
     Active Substance: SEMAGLUTIDE
     Indication: Type 2 diabetes mellitus
     Dosage: OTHER QUANTITY : 1 INJECTION(S);?OTHER FREQUENCY : 1 WEEKLY;?
     Route: 058
     Dates: start: 20221001, end: 20230728
  2. Lisionpril [Concomitant]
  3. JARDIANCE [Concomitant]
     Active Substance: EMPAGLIFLOZIN
  4. MAGNESIUM [Concomitant]
     Active Substance: MAGNESIUM
  5. TYLENOL [Concomitant]
     Active Substance: ACETAMINOPHEN
  6. VITAMINS [Concomitant]
     Active Substance: VITAMINS

REACTIONS (8)
  - Allodynia [None]
  - Burning sensation [None]
  - Fatigue [None]
  - Haemorrhoids [None]
  - Chapped lips [None]
  - Mental disorder [None]
  - Thinking abnormal [None]
  - Therapy interrupted [None]

NARRATIVE: CASE EVENT DATE: 20230714
